FAERS Safety Report 9483494 (Version 1)
Quarter: 2013Q3

REPORT INFORMATION
  Report Type: Spontaneous
  Country: US (occurrence: US)
  Receive Date: 20130828
  Receipt Date: 20130828
  Transmission Date: 20140515
  Serious: Yes (Death, Hospitalization)
  Sender: FDA-Public Use
  Company Number: US-AMGEN-KDL273456

PATIENT
  Age: 91 Year
  Sex: Male
  Weight: 76 kg

DRUGS (2)
  1. PROCRIT [Suspect]
     Indication: ANAEMIA OF MALIGNANT DISEASE
     Dosage: 20000 IU, 2 TIMES/WK
     Route: 065
     Dates: start: 20050901
  2. LEUPRORELIN ACETATE [Concomitant]
     Dosage: UNK UNK, UNK

REACTIONS (2)
  - Death [Fatal]
  - Fall [Recovered/Resolved]
